FAERS Safety Report 7812724-4 (Version None)
Quarter: 2011Q4

REPORT INFORMATION
  Report Type: 
  Country: None (occurrence: None)
  Receive Date: 20111013
  Receipt Date: 20111004
  Transmission Date: 20120403
  Serious: Yes (Death, Hospitalization, Other)
  Sender: FDA-Public Use
  Company Number: JP-ACTELION-A-CH2011-54282

PATIENT
  Sex: Male
  Weight: 61 kg

DRUGS (13)
  1. LEVOTHYROXINE SODIUM [Concomitant]
  2. WARFARIN SODIUM [Concomitant]
  3. BERAPROST SODIUM [Concomitant]
  4. TADALAFIL [Concomitant]
  5. TRACLEER [Suspect]
     Dosage: 62.5 MG, BID
     Route: 048
     Dates: start: 20110527, end: 20110528
  6. TRACLEER [Suspect]
     Indication: PULMONARY ARTERIAL HYPERTENSION
     Dosage: 125 MG, BID
     Route: 048
     Dates: start: 20110425, end: 20110526
  7. TRACLEER [Suspect]
     Dosage: 62.5 MG, BID
     Route: 048
     Dates: start: 20110409, end: 20110424
  8. DOBUTAMINE HCL [Concomitant]
  9. OXYGEN [Concomitant]
  10. FUROSEMIDE [Concomitant]
  11. DILTIAZEM HCL [Concomitant]
  12. HEPARIN SODIUM [Concomitant]
  13. ALBUMIN (HUMAN) [Concomitant]

REACTIONS (8)
  - PNEUMONIA [None]
  - BILIRUBIN CONJUGATED INCREASED [None]
  - LIVER FUNCTION TEST ABNORMAL [None]
  - HAEMOGLOBIN DECREASED [None]
  - GAMMA-GLUTAMYLTRANSFERASE INCREASED [None]
  - BLOOD BILIRUBIN INCREASED [None]
  - CHRONIC OBSTRUCTIVE PULMONARY DISEASE [None]
  - RED BLOOD CELL COUNT DECREASED [None]
